FAERS Safety Report 8101986-4 (Version None)
Quarter: 2012Q1

REPORT INFORMATION
  Report Type: 
  Country: None (occurrence: None)
  Receive Date: 20120131
  Receipt Date: 20120118
  Transmission Date: 20120608
  Serious: Yes (Hospitalization)
  Sender: FDA-Public Use
  Company Number: DE-ELI_LILLY_AND_COMPANY-DE201101004072

PATIENT
  Age: 71 Year
  Sex: Female
  Weight: 43 kg

DRUGS (9)
  1. CREON [Concomitant]
     Dosage: 25000 U, UNK
  2. CHOLESTYRAMINE [Concomitant]
  3. VITAMIN D [Concomitant]
  4. CALCIUM [Concomitant]
  5. FORTEO [Suspect]
     Indication: OSTEOPOROSIS
     Dosage: UNK, UNK
     Route: 058
     Dates: start: 20101006
  6. VITAMIN B-12 [Concomitant]
  7. PANTOPRAZOLE [Concomitant]
  8. LACTRASE [Concomitant]
  9. ENALAPRIL [Concomitant]
     Indication: HYPERTENSION

REACTIONS (3)
  - DIARRHOEA [None]
  - MUSCLE SPASMS [None]
  - HOSPITALISATION [None]
